FAERS Safety Report 20360252 (Version 1)
Quarter: 2022Q1

REPORT INFORMATION
  Report Type: Spontaneous
  Country: CN (occurrence: CN)
  Receive Date: 20220121
  Receipt Date: 20220121
  Transmission Date: 20220423
  Serious: Yes (Other)
  Sender: FDA-Public Use
  Company Number: ALC2022CN000529

PATIENT
  Age: 48 Year
  Sex: Male
  Weight: 64 kg

DRUGS (2)
  1. FLUORESCITE [Suspect]
     Active Substance: FLUORESCEIN SODIUM
     Indication: Fundoscopy
     Dosage: 0.50 G, QD
     Route: 042
     Dates: start: 20220107, end: 20220107
  2. PENTOXIFYLLINE [Suspect]
     Active Substance: PENTOXIFYLLINE
     Indication: Product used for unknown indication
     Dosage: 250 ML OF 0.9% SODIUM CHLORIDE INJECTION + 5 ML OF PENTOXIFYLLINE, QD
     Route: 042
     Dates: start: 20220107, end: 20220107

REACTIONS (3)
  - Cough [Recovered/Resolved]
  - Sneezing [Recovered/Resolved]
  - Rash [Recovered/Resolved]

NARRATIVE: CASE EVENT DATE: 20220107
